FAERS Safety Report 21361070 (Version 1)
Quarter: 2022Q3

REPORT INFORMATION
  Report Type: Spontaneous
  Country: US (occurrence: US)
  Receive Date: 20220921
  Receipt Date: 20220921
  Transmission Date: 20221027
  Serious: No
  Sender: FDA-Public Use
  Company Number: US-LUNDBECK-DKLU3051959

PATIENT
  Age: 45 Year
  Sex: Female
  Weight: 95.7 kg

DRUGS (1)
  1. NORTHERA [Suspect]
     Active Substance: DROXIDOPA
     Indication: Orthostatic hypotension
     Dosage: MORNING, AT NOON, AND AT 3 PM
     Route: 048

REACTIONS (2)
  - Hypotension [Unknown]
  - Product dose omission issue [Unknown]
